FAERS Safety Report 7001694-7 (Version None)
Quarter: 2010Q3

REPORT INFORMATION
  Report Type: 
  Country: None (occurrence: None)
  Receive Date: 20100920
  Receipt Date: 20100909
  Transmission Date: 20110219
  Serious: Yes (Hospitalization, Disabling)
  Sender: FDA-Public Use
  Company Number: FR-PFIZER INC-2009307736

PATIENT
  Age: 47 Year
  Sex: Male
  Weight: 59 kg

DRUGS (6)
  1. SUNITINIB MALATE [Suspect]
     Indication: THYROID CANCER
     Dosage: 50 MG, 1X/DAY,  4 WEEKS OUT OF 6
     Route: 048
     Dates: start: 20090701
  2. SUNITINIB MALATE [Suspect]
     Dosage: 37.5 MG, 1X/DAY,  4 WEEKS OUT OF 6
     Route: 048
     Dates: start: 20091020, end: 20091201
  3. UN-ALFA [Concomitant]
     Dosage: 1 UG, UNK
  4. LEVOTHYROXINE SODIUM [Concomitant]
  5. VECTRINE [Concomitant]
  6. CACIT [Concomitant]

REACTIONS (2)
  - PNEUMOMEDIASTINUM [None]
  - TRACHEAL FISTULA [None]
